FAERS Safety Report 5429520-8 (Version None)
Quarter: 2007Q3

REPORT INFORMATION
  Report Type: 
  Country: None (occurrence: None)
  Receive Date: 20070829
  Receipt Date: 20070822
  Transmission Date: 20080115
  Serious: Yes (Other)
  Sender: FDA-Public Use
  Company Number: US-JNJFOC-20070804952

PATIENT
  Sex: Female
  Weight: 56.25 kg

DRUGS (3)
  1. LEVAQUIN [Suspect]
     Indication: GASTROINTESTINAL INFECTION
     Route: 048
  2. XANAX [Concomitant]
     Indication: BIPOLAR DISORDER
     Route: 065
  3. EFFEXOR [Concomitant]
     Indication: ANXIETY
     Route: 065

REACTIONS (7)
  - DIZZINESS [None]
  - DYSPNOEA [None]
  - GAIT DISTURBANCE [None]
  - HYPERHIDROSIS [None]
  - LOSS OF CONSCIOUSNESS [None]
  - NAUSEA [None]
  - URTICARIA [None]
